FAERS Safety Report 13000967 (Version 1)
Quarter: 2016Q4

REPORT INFORMATION
  Report Type: Spontaneous
  Country: US (occurrence: US)
  Receive Date: 20161206
  Receipt Date: 20161206
  Transmission Date: 20170207
  Serious: Yes (Other)
  Sender: FDA-Public Use
  Company Number: US-CIPLA LTD.-2016US22766

PATIENT

DRUGS (2)
  1. CARBOPLATIN. [Suspect]
     Active Substance: CARBOPLATIN
     Indication: RETINOBLASTOMA
     Dosage: UNK, SCHEDULED FOR A TOTAL OF EIGHT COURSES EVERY 21 DAYS
     Route: 065
  2. VINCRISTINE [Suspect]
     Active Substance: VINCRISTINE
     Indication: RETINOBLASTOMA
     Dosage: UNK, SCHEDULED FOR A TOTAL OF EIGHT COURSES EVERY 21 DAYS
     Route: 065

REACTIONS (3)
  - Disease progression [Unknown]
  - Thrombocytopenia [Unknown]
  - Neutropenia [Unknown]
